FAERS Safety Report 8598463-3 (Version None)
Quarter: 2012Q3

REPORT INFORMATION
  Report Type: 
  Country: None (occurrence: None)
  Receive Date: 20120816
  Receipt Date: 20120802
  Transmission Date: 20120928
  Serious: Yes (Other)
  Sender: FDA-Public Use
  Company Number: PHHY2012US047047

PATIENT
  Sex: Female

DRUGS (1)
  1. TASIGNA [Suspect]
     Route: 048

REACTIONS (5)
  - PREMATURE LABOUR [None]
  - PRE-ECLAMPSIA [None]
  - PAIN [None]
  - MATERNAL EXPOSURE DURING PREGNANCY [None]
  - ANAEMIA [None]
